FAERS Safety Report 12714288 (Version 1)
Quarter: 2016Q3

REPORT INFORMATION
  Report Type: Spontaneous
  Country: US (occurrence: US)
  Receive Date: 20160905
  Receipt Date: 20160905
  Transmission Date: 20161109
  Serious: No
  Sender: FDA-Public Use
  Company Number: US-JAZZ-2016-US-008842

PATIENT
  Sex: Female
  Weight: 72.56 kg

DRUGS (11)
  1. XYREM [Suspect]
     Active Substance: SODIUM OXYBATE
     Indication: NARCOLEPSY
     Dosage: 2.25 G, BID
     Route: 048
     Dates: start: 201604, end: 201605
  2. VITAMIN D3 [Concomitant]
     Active Substance: CHOLECALCIFEROL
  3. BIOTIN [Concomitant]
     Active Substance: BIOTIN
  4. XYREM [Suspect]
     Active Substance: SODIUM OXYBATE
     Indication: CATAPLEXY
     Dosage: 3 G, BID
     Route: 048
     Dates: start: 201605
  5. IBUPROFEN. [Concomitant]
     Active Substance: IBUPROFEN
  6. CLINDAMYCIN [Concomitant]
     Active Substance: CLINDAMYCIN\CLINDAMYCIN PHOSPHATE
  7. MONISTAT [Concomitant]
     Active Substance: MICONAZOLE NITRATE
  8. VITAMINS [Concomitant]
     Active Substance: VITAMINS
  9. VICKS DAYQUIL [Concomitant]
     Active Substance: DEXTROMETHORPHAN HYDROBROMIDE\GUAIFENESIN
  10. FOLIC ACID. [Concomitant]
     Active Substance: FOLIC ACID
  11. PROVIGIL [Concomitant]
     Active Substance: MODAFINIL

REACTIONS (4)
  - Nightmare [Recovered/Resolved]
  - Middle ear effusion [Unknown]
  - Nervousness [Recovered/Resolved]
  - Panic attack [Recovered/Resolved]

NARRATIVE: CASE EVENT DATE: 2016
